FAERS Safety Report 9308334 (Version 1)
Quarter: 2013Q2

REPORT INFORMATION
  Report Type: Spontaneous
  Country: US (occurrence: US)
  Receive Date: 20130524
  Receipt Date: 20130524
  Transmission Date: 20140414
  Serious: Yes (Hospitalization, Disabling, Other)
  Sender: FDA-Public Use
  Company Number: US-EISAI INC-E3810-06450-SPO-US

PATIENT
  Sex: Female
  Weight: 76 kg

DRUGS (3)
  1. ACIPHEX (RABEPRAZOLE) [Suspect]
     Indication: HIATUS HERNIA
     Route: 048
     Dates: start: 2006
  2. NEXIUM [Suspect]
     Indication: HIATUS HERNIA
     Route: 048
     Dates: start: 2012
  3. TAGAMET [Suspect]
     Indication: HIATUS HERNIA
     Dates: start: 2012

REACTIONS (15)
  - Organising pneumonia [Unknown]
  - Pneumonia [Recovered/Resolved]
  - Hypoaesthesia [Not Recovered/Not Resolved]
  - Pulmonary fibrosis [Not Recovered/Not Resolved]
  - Prescribed overdose [Not Recovered/Not Resolved]
  - Intervertebral disc protrusion [Unknown]
  - Gastric ulcer [Unknown]
  - Aspiration [Recovered/Resolved]
  - Chronic obstructive pulmonary disease [Not Recovered/Not Resolved]
  - Colitis ulcerative [Recovering/Resolving]
  - Frequent bowel movements [Recovering/Resolving]
  - Abnormal loss of weight [Not Recovered/Not Resolved]
  - Medication error [Unknown]
  - Pain [Unknown]
  - Diarrhoea [Recovering/Resolving]
